FAERS Safety Report 13884310 (Version 1)
Quarter: 2017Q3

REPORT INFORMATION
  Report Type: Spontaneous
  Country: US (occurrence: US)
  Receive Date: 20170815
  Receipt Date: 20170815
  Transmission Date: 20171127
  Serious: Yes (Disabling, Other)
  Sender: FDA-Public Use
  Company Number: None

PATIENT
  Age: 52 Year
  Sex: Male
  Weight: 114.75 kg

DRUGS (5)
  1. COMBIVENT [Concomitant]
     Active Substance: ALBUTEROL SULFATE\IPRATROPIUM BROMIDE
  2. PRAZOSIN. [Concomitant]
     Active Substance: PRAZOSIN
  3. GABAPENTIN. [Concomitant]
     Active Substance: GABAPENTIN
  4. SYMBICORT [Suspect]
     Active Substance: BUDESONIDE\FORMOTEROL FUMARATE DIHYDRATE
     Indication: CHRONIC OBSTRUCTIVE PULMONARY DISEASE
     Dosage: ?          QUANTITY:120 INHALATION(S);?
     Route: 055
     Dates: start: 20170701, end: 20170807
  5. HYDROCHLOROTHIAZIDE. [Concomitant]
     Active Substance: HYDROCHLOROTHIAZIDE

REACTIONS (3)
  - Cough [None]
  - Respiratory disorder [None]
  - Pneumonia [None]

NARRATIVE: CASE EVENT DATE: 20170806
